FAERS Safety Report 13548534 (Version 1)
Quarter: 2017Q2

REPORT INFORMATION
  Report Type: Spontaneous
  Country: US (occurrence: US)
  Receive Date: 20170516
  Receipt Date: 20170516
  Transmission Date: 20170830
  Serious: No
  Sender: FDA-Public Use
  Company Number: US-JNJFOC-20170403914

PATIENT
  Age: 24 Year
  Sex: Male
  Weight: 83.92 kg

DRUGS (5)
  1. MENS ROGAINE EXTRA STRENGTH [Suspect]
     Active Substance: MINOXIDIL
     Indication: ALOPECIA
     Dosage: 1 CUPFUL
     Route: 061
     Dates: start: 20160804
  2. MENS ROGAINE EXTRA STRENGTH [Suspect]
     Active Substance: MINOXIDIL
     Route: 061
  3. BIOTIN [Concomitant]
     Active Substance: BIOTIN
     Indication: HAIR GROWTH ABNORMAL
     Dosage: 5MONTHS
     Route: 065
  4. VITAMIN D [Concomitant]
     Active Substance: CHOLECALCIFEROL
     Indication: HAIR GROWTH ABNORMAL
     Dosage: 1TAB/1XPERDAY
     Route: 065
  5. LYSINE [Concomitant]
     Active Substance: LYSINE
     Indication: HAIR GROWTH ABNORMAL
     Dosage: 6 MONTHS
     Route: 065

REACTIONS (2)
  - Drug effect incomplete [Unknown]
  - Overdose [Unknown]
